FAERS Safety Report 9896513 (Version 1)
Quarter: 2014Q1

REPORT INFORMATION
  Report Type: Spontaneous
  Country: US (occurrence: US)
  Receive Date: 20140213
  Receipt Date: 20140213
  Transmission Date: 20141002
  Serious: No
  Sender: FDA-Public Use
  Company Number: US-BRISTOL-MYERS SQUIBB COMPANY-18849166

PATIENT
  Age: 63 Year
  Sex: Female
  Weight: 54.42 kg

DRUGS (15)
  1. ABATACEPT SUBQ INJECTION 125MG/ML [Suspect]
     Route: 058
  2. METHOTREXATE [Concomitant]
  3. CYMBALTA [Concomitant]
  4. VITAMIN D3 [Concomitant]
  5. VITAMIN C [Concomitant]
  6. OMEGA 3 FATTY ACID [Concomitant]
  7. VITAMIN B12 [Concomitant]
     Route: 058
  8. LEUCOVORIN [Concomitant]
  9. KLONOPIN [Concomitant]
  10. EXCEDRIN [Concomitant]
  11. ABILIFY TABS [Concomitant]
  12. NEXIUM [Concomitant]
  13. VYVANSE [Concomitant]
  14. CLARITIN [Concomitant]
  15. OXYCONTIN CR [Concomitant]

REACTIONS (1)
  - Rhinorrhoea [Unknown]
